FAERS Safety Report 17416131 (Version 1)
Quarter: 2020Q1

REPORT INFORMATION
  Report Type: Spontaneous
  Country: US (occurrence: US)
  Receive Date: 20200213
  Receipt Date: 20200213
  Transmission Date: 20200409
  Serious: Yes (Death)
  Sender: FDA-Public Use
  Company Number: US-BAYER-2020-024894

PATIENT
  Age: 72 Year
  Sex: Male

DRUGS (1)
  1. STIVARGA [Suspect]
     Active Substance: REGORAFENIB
     Indication: COLON CANCER
     Dosage: DAILY DOSE 40 MG 21 DAYS ON AND 7 DAYS OFF
     Dates: start: 20190430

REACTIONS (2)
  - Off label use [None]
  - Death [Fatal]

NARRATIVE: CASE EVENT DATE: 20190430
